FAERS Safety Report 9494600 (Version 2)
Quarter: 2013Q3

REPORT INFORMATION
  Report Type: Spontaneous
  Country: IN (occurrence: None)
  Receive Date: 20130828
  Receipt Date: 20130904
  Transmission Date: 20140515
  Serious: Yes (Other)
  Sender: FDA-Public Use
  Company Number: SYM-2013-09845

PATIENT
  Age: 36 Year
  Sex: Female

DRUGS (4)
  1. 5 FU [Suspect]
     Indication: COLORECTAL CANCER METASTATIC
     Dosage: (NOT OTHERWISE SPECIFIED)
     Route: 042
     Dates: start: 20130712, end: 20130712
  2. IRINOTECAN [Suspect]
     Indication: COLORECTAL CANCER METASTATIC
     Dosage: (NOT OTHERWISE SPECIFIED)
     Route: 042
     Dates: start: 20130712, end: 20130712
  3. LEUCOVORIN (FOLINIC ACID) (SOLUTION FOR INFUSION) (FOLINIC ACID) [Suspect]
     Indication: COLORECTAL CANCER METASTATIC
     Dosage: (NOT OTHERWISE SPECIFIED)
     Route: 042
     Dates: start: 20130712, end: 20130712
  4. ZALTRAP (AFLIBERCEPT) (SOLUTION FOR INFUSION) (AFLIBERCEPT) [Suspect]
     Indication: COLORECTAL CANCER METASTATIC
     Dosage: (NOT OTHERWISE SPECIFIED)
     Route: 042
     Dates: start: 20130712, end: 20130712

REACTIONS (2)
  - Thrombocytopenia [None]
  - Bone pain [None]
